FAERS Safety Report 6770184-9 (Version None)
Quarter: 2010Q2

REPORT INFORMATION
  Report Type: 
  Country: None (occurrence: None)
  Receive Date: 20100615
  Receipt Date: 20100506
  Transmission Date: 20101027
  Serious: Yes (Other)
  Sender: FDA-Public Use
  Company Number: DE-MERCK-0906DEU00017

PATIENT
  Age: 81 Year
  Sex: Male

DRUGS (11)
  1. JANUMET [Suspect]
     Indication: TYPE 2 DIABETES MELLITUS
     Route: 048
     Dates: start: 20090420, end: 20090526
  2. ASPIRIN [Concomitant]
     Indication: HYPERTENSION
     Route: 048
  3. ASPIRIN [Concomitant]
     Route: 048
  4. BENAZEPRIL HYDROCHLORIDE [Concomitant]
     Route: 048
  5. SIMVASTATIN [Concomitant]
     Route: 048
  6. MAGNESIUM (UNSPECIFIED) [Concomitant]
     Route: 048
  7. ZINC OROTATE [Concomitant]
     Route: 048
  8. ALLOPURINOL [Concomitant]
     Route: 048
  9. SITAGLIPTIN PHOSPHATE [Suspect]
     Indication: TYPE 2 DIABETES MELLITUS
     Route: 048
     Dates: start: 20090529, end: 20090603
  10. SITAGLIPTIN PHOSPHATE [Suspect]
     Route: 048
     Dates: start: 20090527, end: 20090528
  11. OMEPRAZOLE [Concomitant]
     Route: 048

REACTIONS (5)
  - GLOMERULOSCLEROSIS [None]
  - NEPHROSCLEROSIS [None]
  - RENAL FAILURE [None]
  - TUBULOINTERSTITIAL NEPHRITIS [None]
  - WRONG TECHNIQUE IN DRUG USAGE PROCESS [None]
